FAERS Safety Report 10185253 (Version 1)
Quarter: 2014Q2

REPORT INFORMATION
  Report Type: Spontaneous
  Country: US (occurrence: None)
  Receive Date: 20140520
  Receipt Date: 20140520
  Transmission Date: 20141212
  Serious: Yes (Disabling)
  Sender: FDA-Public Use
  Company Number: None

PATIENT
  Age: 45 Year
  Sex: Female
  Weight: 95.26 kg

DRUGS (1)
  1. DOXYCYCLINE HYCLATE [Suspect]
     Indication: SINUSITIS
     Dosage: 2PILLS 10DAYS.

REACTIONS (3)
  - Depression [None]
  - Drug ineffective [None]
  - Arthralgia [None]
